FAERS Safety Report 20794283 (Version 1)
Quarter: 2022Q2

REPORT INFORMATION
  Report Type: Spontaneous
  Country: ES (occurrence: ES)
  Receive Date: 20220506
  Receipt Date: 20220506
  Transmission Date: 20220721
  Serious: Yes (Death, Hospitalization)
  Sender: FDA-Public Use
  Company Number: ES-STRIDES ARCOLAB LIMITED-2022SP005066

PATIENT
  Age: 45 Year
  Sex: Female

DRUGS (6)
  1. TACROLIMUS [Suspect]
     Active Substance: TACROLIMUS
     Indication: Renal transplant
     Dosage: UNK, MAINTENANCE THERAPY
     Route: 065
  2. PREDNISOLONE [Suspect]
     Active Substance: PREDNISOLONE
     Indication: Renal transplant
     Dosage: UNK, MAINTENANCE THERAPY
     Route: 065
  3. CYCLOSPORINE [Suspect]
     Active Substance: CYCLOSPORINE
     Indication: Renal transplant
     Dosage: UNK, MAINTENANCE THERAPY
     Route: 065
  4. EVEROLIMUS [Suspect]
     Active Substance: EVEROLIMUS
     Indication: Renal transplant
     Dosage: UNK, MAINTENANCE THERAPY
     Route: 065
  5. THYMOGLOBULIN [Concomitant]
     Active Substance: LAPINE T-LYMPHOCYTE IMMUNE GLOBULIN
     Indication: Renal transplant
     Dosage: UNK,  INDUCTION THERAPY
     Route: 065
  6. COTRIMOXAZOLE [Concomitant]
     Active Substance: SULFAMETHOXAZOLE\TRIMETHOPRIM
     Indication: Prophylaxis
     Dosage: UNK
     Route: 065

REACTIONS (7)
  - Multiple organ dysfunction syndrome [Fatal]
  - Septic shock [Fatal]
  - Urinary tract infection [Unknown]
  - Herpes virus infection [Unknown]
  - Hepatitis viral [Unknown]
  - Candida infection [Unknown]
  - Systemic candida [Unknown]
